FAERS Safety Report 7058159-6 (Version None)
Quarter: 2010Q4

REPORT INFORMATION
  Report Type: 
  Country: None (occurrence: None)
  Receive Date: 20101022
  Receipt Date: 20101020
  Transmission Date: 20110411
  Serious: Yes (Hospitalization, Other)
  Sender: FDA-Public Use
  Company Number: JP-SANOFI-AVENTIS-200913026JP

PATIENT
  Age: 52 Year
  Sex: Male
  Weight: 55 kg

DRUGS (17)
  1. ARAVA [Suspect]
     Indication: RHEUMATOID ARTHRITIS
     Route: 048
     Dates: start: 20060609, end: 20060611
  2. ARAVA [Suspect]
     Route: 048
     Dates: start: 20060612, end: 20060706
  3. ARAVA [Suspect]
     Route: 048
     Dates: start: 20060825, end: 20060907
  4. ARAVA [Suspect]
     Route: 048
     Dates: start: 20060928, end: 20080310
  5. ETANERCEPT [Suspect]
     Route: 058
     Dates: start: 20061026, end: 20071022
  6. ETANERCEPT [Suspect]
     Route: 058
     Dates: start: 20071025, end: 20080104
  7. ETANERCEPT [Suspect]
     Route: 058
     Dates: start: 20080128, end: 20080204
  8. MEDROL [Suspect]
     Route: 048
  9. QUESTRAN [Suspect]
     Dates: start: 20061204, end: 20061211
  10. OPALMON [Concomitant]
     Dosage: DOSE: 3 TABLETS
     Route: 048
     Dates: start: 20071113, end: 20080310
  11. VOLTAREN [Concomitant]
     Route: 048
  12. TAKEPRON [Concomitant]
     Route: 048
     Dates: end: 20070802
  13. MUCOSTA [Concomitant]
     Route: 048
  14. ALL OTHER THERAPEUTIC PRODUCTS [Concomitant]
     Route: 048
     Dates: start: 20061019
  15. ALENDRONATE SODIUM [Concomitant]
     Route: 048
     Dates: start: 20061019, end: 20080310
  16. ALLEGRA [Concomitant]
     Route: 048
     Dates: start: 20061124, end: 20061204
  17. CELESTAMINE TAB [Concomitant]
     Route: 048
     Dates: start: 20061127, end: 20061204

REACTIONS (6)
  - BRAIN OEDEMA [None]
  - DIPLOPIA [None]
  - DIZZINESS [None]
  - HALLUCINATION [None]
  - HALLUCINATION, AUDITORY [None]
  - LEUKOENCEPHALOPATHY [None]
